FAERS Safety Report 5360505-6 (Version None)
Quarter: 2007Q2

REPORT INFORMATION
  Report Type: 
  Country: None (occurrence: None)
  Receive Date: 20070618
  Receipt Date: 20070615
  Transmission Date: 20071010
  Serious: Yes (Other)
  Sender: FDA-Public Use
  Company Number: B0474027A

PATIENT
  Age: 63 Year
  Sex: Male
  Weight: 76 kg

DRUGS (2)
  1. CLAMOXYL [Suspect]
     Dosage: 1G TWICE PER DAY
     Route: 048
     Dates: start: 20070601, end: 20070603
  2. ACETAMINOPHEN [Concomitant]
     Dosage: 1G AS REQUIRED
     Route: 048

REACTIONS (9)
  - ABDOMINAL PAIN UPPER [None]
  - ANOREXIA [None]
  - ASTHENIA [None]
  - HEPATITIS [None]
  - HEPATOSPLENOMEGALY [None]
  - JAUNDICE [None]
  - LIVER DISORDER [None]
  - MYALGIA [None]
  - PYREXIA [None]
